FAERS Safety Report 6340166-X (Version None)
Quarter: 2009Q3

REPORT INFORMATION
  Report Type: 
  Country: None (occurrence: None)
  Receive Date: 20090903
  Receipt Date: 20090826
  Transmission Date: 20100115
  Serious: Yes (Hospitalization, Other)
  Sender: FDA-Public Use
  Company Number: US-AMGEN-QUU361081

PATIENT
  Sex: Male

DRUGS (10)
  1. ENBREL [Suspect]
     Indication: RHEUMATOID ARTHRITIS
     Route: 058
     Dates: start: 20080904, end: 20090601
  2. METHOTREXATE [Concomitant]
     Route: 048
     Dates: start: 20080306, end: 20090719
  3. PREDNISONE [Concomitant]
     Route: 048
     Dates: end: 20090719
  4. INH [Concomitant]
     Route: 048
     Dates: start: 20080809
  5. SULFASALAZINE [Concomitant]
     Route: 048
  6. FOLIC ACID [Concomitant]
  7. DETROL [Concomitant]
  8. AVODART [Concomitant]
  9. HYDROCODONE [Concomitant]
  10. FLOMAX [Concomitant]

REACTIONS (10)
  - BONE TUBERCULOSIS [None]
  - CARDIAC MURMUR [None]
  - CUSHINGOID [None]
  - FALL [None]
  - INTERVERTEBRAL DISC COMPRESSION [None]
  - RHEUMATOID ARTHRITIS [None]
  - SPINAL COLUMN STENOSIS [None]
  - SPINAL COMPRESSION FRACTURE [None]
  - SPINAL CORD COMPRESSION [None]
  - TACHYCARDIA [None]
